FAERS Safety Report 6816312-8 (Version None)
Quarter: 2010Q3

REPORT INFORMATION
  Report Type: 
  Country: None (occurrence: None)
  Receive Date: 20100705
  Receipt Date: 20100621
  Transmission Date: 20110219
  Serious: Yes (Hospitalization, Other)
  Sender: FDA-Public Use
  Company Number: PHHY2010AU39719

PATIENT
  Sex: Male

DRUGS (3)
  1. CLOZARIL [Suspect]
     Indication: SCHIZOPHRENIA
     Dosage: 12.5 MG
     Dates: start: 20100524
  2. CLOZARIL [Suspect]
     Dosage: 100 MG
     Dates: start: 20100602
  3. CLOZARIL [Suspect]
     Dosage: 200 MG
     Dates: start: 20100609, end: 20100616

REACTIONS (22)
  - ATRIOVENTRICULAR BLOCK SECOND DEGREE [None]
  - BLASTOCYSTIS INFECTION [None]
  - BLOOD CREATINE PHOSPHOKINASE INCREASED [None]
  - C-REACTIVE PROTEIN INCREASED [None]
  - CHEST PAIN [None]
  - DIARRHOEA [None]
  - DYSPNOEA [None]
  - EJECTION FRACTION DECREASED [None]
  - ELECTROCARDIOGRAM ST SEGMENT ELEVATION [None]
  - ELECTROCARDIOGRAM T WAVE INVERSION [None]
  - HEART RATE INCREASED [None]
  - LEFT VENTRICULAR DYSFUNCTION [None]
  - MALAISE [None]
  - MYOCARDIAL INFARCTION [None]
  - MYOCARDITIS [None]
  - PLEURITIC PAIN [None]
  - PYREXIA [None]
  - TROPONIN INCREASED [None]
  - UPPER RESPIRATORY TRACT INFECTION [None]
  - VENTRICULAR HYPOKINESIA [None]
  - VIRAL INFECTION [None]
  - WHITE BLOOD CELL COUNT INCREASED [None]
